FAERS Safety Report 8341995-3 (Version None)
Quarter: 2012Q1

REPORT INFORMATION
  Report Type: 
  Country: None (occurrence: None)
  Receive Date: 20120330
  Receipt Date: 20030630
  Transmission Date: 20120608
  Serious: Yes (Hospitalization)
  Sender: FDA-Public Use
  Company Number: PHEH2003US05559

PATIENT
  Age: 70 Year

DRUGS (4)
  1. ATENOLOL [Concomitant]
  2. EXELON [Suspect]
     Indication: MEMORY IMPAIRMENT
     Dosage: 4.5 MG, BID, ORAL
     Route: 048
     Dates: start: 20030219
  3. HYDRALAZINE HCL [Concomitant]
  4. NORVASC [Concomitant]

REACTIONS (1)
  - HYPOTENSION [None]
